FAERS Safety Report 24557270 (Version 1)
Quarter: 2024Q4

REPORT INFORMATION
  Report Type: Spontaneous
  Country: SK (occurrence: SK)
  Receive Date: 20241028
  Receipt Date: 20241028
  Transmission Date: 20250115
  Serious: Yes (Other)
  Sender: ROCHE
  Company Number: SK-ROCHE-10000115615

PATIENT
  Age: 45 Year
  Sex: Male

DRUGS (1)
  1. ALECTINIB [Suspect]
     Active Substance: ALECTINIB
     Indication: Inflammatory myofibroblastic tumour
     Route: 048
     Dates: start: 20200606

REACTIONS (2)
  - Disease progression [Unknown]
  - Metastasis [Unknown]
